FAERS Safety Report 8959446 (Version 1)
Quarter: 2012Q4

REPORT INFORMATION
  Report Type: Report from Study
  Country: FR (occurrence: FR)
  Receive Date: 20121212
  Receipt Date: 20121212
  Transmission Date: 20130627
  Serious: Yes (Death, Hospitalization)
  Sender: FDA-Public Use
  Company Number: FR-CELGENEUS-056-21880-12120729

PATIENT
  Age: 47 Year
  Sex: Male
  Weight: 58 kg

DRUGS (32)
  1. REVLIMID [Suspect]
     Indication: KAPOSI^S SARCOMA
     Dosage: 25 Milligram
     Route: 048
     Dates: start: 20120106, end: 20120119
  2. TRUVADA [Suspect]
     Indication: HIV DISEASE
     Dosage: .5 Tablet
     Route: 048
     Dates: start: 20100429, end: 20120203
  3. OXYCONTIN [Suspect]
     Indication: PAIN
     Dosage: 600 Milligram
     Route: 065
     Dates: start: 20101006
  4. CYMBALTA [Suspect]
     Indication: DRUG USE FOR UNKNOWN INDICATION
     Dosage: 30
     Route: 065
  5. ISENTRESS [Concomitant]
     Indication: HIV DISEASE
     Dosage: 800 Unknown
     Route: 048
     Dates: start: 20100429
  6. KALETRA [Concomitant]
     Indication: HIV DISEASE
     Dosage: 4 Tablet
     Route: 048
     Dates: start: 20100429
  7. PREVISCAN [Concomitant]
     Indication: THROMBOSIS PROPHYLAXIS
     Route: 065
     Dates: start: 20090525
  8. RAMIPRIL [Concomitant]
     Indication: RENAL FAILURE
     Dosage: 5 Milligram
     Route: 065
     Dates: start: 20100817, end: 20110119
  9. STILNOX [Concomitant]
     Indication: INSOMNIA
     Route: 065
     Dates: start: 20091002
  10. STILNOX [Concomitant]
     Dosage: 10 Milligram
     Route: 065
  11. FOLIC ACID [Concomitant]
     Indication: DRUG USE FOR UNKNOWN INDICATION
     Dosage: 25 Milligram
     Route: 065
  12. FOLIC ACID [Concomitant]
     Dosage: 10 Milligram
  13. TARDYFERON [Concomitant]
     Indication: DRUG USE FOR UNKNOWN INDICATION
     Dosage: 160 Milligram
     Route: 065
  14. PARIET [Concomitant]
     Indication: DRUG USE FOR UNKNOWN INDICATION
     Dosage: 40 Milligram
     Route: 065
  15. OXYNORM [Concomitant]
     Indication: PAIN
     Dosage: 120 Milligram
     Route: 065
     Dates: start: 20120113
  16. OXYNORM [Concomitant]
     Route: 065
  17. FORLAX [Concomitant]
     Indication: DRUG USE FOR UNKNOWN INDICATION
     Route: 065
  18. PRIMPERAN [Concomitant]
     Indication: DRUG USE FOR UNKNOWN INDICATION
     Dosage: 3 Tablespoon
     Route: 065
  19. VENTOLIN [Concomitant]
     Indication: DRUG USE FOR UNKNOWN INDICATION
     Route: 065
  20. TEMESTA [Concomitant]
     Indication: DRUG USE FOR UNKNOWN INDICATION
     Dosage: 1 Milligram
     Route: 065
  21. KAYEXALATE [Concomitant]
     Indication: DRUG USE FOR UNKNOWN INDICATION
     Dosage: .2857 Dosage forms
     Route: 065
  22. DEXERYL [Concomitant]
     Indication: DRUG USE FOR UNKNOWN INDICATION
     Dosage: .1429 Dosage forms
     Route: 065
  23. SPECIAFOLDINE [Concomitant]
     Indication: DRUG USE FOR UNKNOWN INDICATION
     Route: 065
  24. DUPHALAC [Concomitant]
     Indication: DRUG USE FOR UNKNOWN INDICATION
     Dosage: 2 Dosage forms
     Route: 065
  25. ARANESP [Concomitant]
     Indication: DRUG USE FOR UNKNOWN INDICATION
     Route: 065
  26. CALCIPARIN [Concomitant]
     Indication: DRUG USE FOR UNKNOWN INDICATION
     Route: 065
  27. LEDERFOLINE [Concomitant]
     Indication: DRUG USE FOR UNKNOWN INDICATION
     Route: 065
  28. RIVOTRIL [Concomitant]
     Indication: DRUG USE FOR UNKNOWN INDICATION
     Route: 065
  29. INIPOMP [Concomitant]
     Indication: DRUG USE FOR UNKNOWN INDICATION
     Route: 065
  30. CYMEVAN [Concomitant]
     Indication: BICYTOPENIA
     Route: 065
  31. TRIFLUCAN [Concomitant]
     Indication: DRUG USE FOR UNKNOWN INDICATION
     Route: 065
  32. ECONAZOLE [Concomitant]
     Indication: DRUG USE FOR UNKNOWN INDICATION
     Dosage: 2 Dosage forms
     Route: 065

REACTIONS (9)
  - Renal failure chronic [Fatal]
  - Nephrotic syndrome [Not Recovered/Not Resolved]
  - Confusional state [Not Recovered/Not Resolved]
  - Paraesthesia [Recovering/Resolving]
  - Asthenia [Recovering/Resolving]
  - Anaemia [Recovering/Resolving]
  - Anaemia [Not Recovered/Not Resolved]
  - Renal failure acute [Recovering/Resolving]
  - Hyperkalaemia [Recovered/Resolved]
